FAERS Safety Report 17664743 (Version 2)
Quarter: 2020Q2

REPORT INFORMATION
  Report Type: Spontaneous
  Country: US (occurrence: US)
  Receive Date: 20200414
  Receipt Date: 20200422
  Transmission Date: 20200713
  Serious: No
  Sender: FDA-Public Use
  Company Number: US-SA-2020SA092111

PATIENT
  Age: 77 Year
  Sex: Female

DRUGS (1)
  1. PRALUENT [Suspect]
     Active Substance: ALIROCUMAB
     Dosage: 75 MG

REACTIONS (3)
  - Wrong technique in device usage process [Unknown]
  - Injection site haemorrhage [Unknown]
  - Injection site discolouration [Unknown]
